FAERS Safety Report 7137925-2 (Version None)
Quarter: 2010Q4

REPORT INFORMATION
  Report Type: 
  Country: None (occurrence: None)
  Receive Date: 20101118
  Receipt Date: 20101109
  Transmission Date: 20110411
  Serious: Yes (Hospitalization)
  Sender: FDA-Public Use
  Company Number: LEO-2010-00531

PATIENT
  Age: 65 Year
  Sex: Female

DRUGS (6)
  1. INNOHEP [Suspect]
     Indication: ATRIAL FIBRILLATION
     Dosage: 14000 IU (14000 IU, 1 IN 1 D), SUBCUTANEOUS
     Route: 058
     Dates: start: 20100528, end: 20100601
  2. PREVISCAN (FLUINDIONE) (20 MILLIGRAM, TABLETS) [Suspect]
     Indication: ATRIAL FIBRILLATION
     Dosage: 0.75 DOSAGE FORMS, ORAL
     Route: 048
     Dates: start: 20100524
  3. AMLODIPINE BESYLATE [Concomitant]
  4. BI PRETERAX (INDAPAMIDE, PERINDOPRIL ERBUMINE) [Concomitant]
  5. HEMIGOXIN (DIGOXIN) [Concomitant]
  6. ASPIRIN [Concomitant]

REACTIONS (11)
  - BRAIN OEDEMA [None]
  - DERMATITIS [None]
  - EXTRADURAL HAEMATOMA [None]
  - GLYCOSYLATED HAEMOGLOBIN INCREASED [None]
  - HEART SOUNDS ABNORMAL [None]
  - HEPATOMEGALY [None]
  - INTERNATIONAL NORMALISED RATIO INCREASED [None]
  - OFF LABEL USE [None]
  - OVERDOSE [None]
  - SUBDURAL HAEMATOMA [None]
  - TREATMENT NONCOMPLIANCE [None]
